FAERS Safety Report 25961019 (Version 1)
Quarter: 2025Q4

REPORT INFORMATION
  Report Type: Spontaneous
  Country: US (occurrence: US)
  Receive Date: 20251027
  Receipt Date: 20251027
  Transmission Date: 20260117
  Serious: No
  Sender: ROCHE
  Company Number: US-ROCHE-10000416555

PATIENT
  Age: 39 Year
  Sex: Female

DRUGS (3)
  1. XOLAIR [Suspect]
     Active Substance: OMALIZUMAB
     Indication: Product used for unknown indication
     Route: 065
  2. DUPIXENT [Suspect]
     Active Substance: DUPILUMAB
     Indication: Urticaria
     Route: 058
     Dates: start: 20250724
  3. DUPIXENT [Suspect]
     Active Substance: DUPILUMAB
     Indication: Vasculitis
     Route: 058
     Dates: start: 202508

REACTIONS (1)
  - Urticaria [Recovered/Resolved]
